FAERS Safety Report 23196775 (Version 1)
Quarter: 2023Q4

REPORT INFORMATION
  Report Type: Spontaneous
  Country: RS (occurrence: None)
  Receive Date: 20231117
  Receipt Date: 20231117
  Transmission Date: 20240110
  Serious: Yes (Hospitalization, Other)
  Sender: FDA-Public Use
  Company Number: 2023A256895

PATIENT
  Sex: Female

DRUGS (10)
  1. DAPAGLIFLOZIN [Suspect]
     Active Substance: DAPAGLIFLOZIN
     Indication: Type 2 diabetes mellitus
     Route: 048
     Dates: start: 202310
  2. INSULIN NOS [Concomitant]
     Active Substance: INSULIN NOS
  3. LEVOTHYROXINE [Concomitant]
     Active Substance: LEVOTHYROXINE
     Dosage: 50 MCG 1+0+0 HALF AN HOUR BEFORE COFFEE, BREAKFAST AND OTHER MEDICINES
  4. ROSUCHOL [Concomitant]
     Dosage: 20MG 1X1 IN THE EVENING
  5. NOVORAPID [Concomitant]
     Active Substance: INSULIN ASPART
     Dosage: 6-12U BEFORE MEAL
  6. TRESIBA [Concomitant]
     Active Substance: INSULIN DEGLUDEC
     Dosage: 20-30U
  7. GLUCOPHAGE XR [Concomitant]
     Active Substance: METFORMIN HYDROCHLORIDE
     Dosage: 1000MG TBL
  8. OZEMPIC [Concomitant]
     Active Substance: SEMAGLUTIDE
     Dosage: 0.25MG 1X1 SC PER WEEK
  9. OZEMPIC [Concomitant]
     Active Substance: SEMAGLUTIDE
     Dosage: 0.5MG (4 WEEKS)
  10. OZEMPIC [Concomitant]
     Active Substance: SEMAGLUTIDE
     Dosage: 1MG 1X1 SC UNTIL CONTROL (HBA1C 9.3%)

REACTIONS (9)
  - Diabetes mellitus inadequate control [Unknown]
  - Polyneuropathy [Unknown]
  - Urinary tract infection bacterial [Unknown]
  - Myocardial ischaemia [Unknown]
  - Dysuria [Unknown]
  - Escherichia infection [Unknown]
  - Hypoglycaemia [Unknown]
  - Decreased activity [Unknown]
  - Obesity [Unknown]
